APPROVED DRUG PRODUCT: PROPRANOLOL HYDROCHLORIDE
Active Ingredient: PROPRANOLOL HYDROCHLORIDE
Strength: 90MG
Dosage Form/Route: TABLET;ORAL
Application: A072198 | Product #001
Applicant: SANDOZ INC
Approved: Jul 5, 1988 | RLD: No | RS: No | Type: DISCN